FAERS Safety Report 15902646 (Version 1)
Quarter: 2019Q1

REPORT INFORMATION
  Report Type: Spontaneous
  Country: PK (occurrence: PK)
  Receive Date: 20190202
  Receipt Date: 20190202
  Transmission Date: 20190417
  Serious: No
  Sender: FDA-Public Use
  Company Number: PK-ALKEM LABORATORIES LIMITED-PK-ALKEM-2018-06010

PATIENT
  Sex: Female

DRUGS (1)
  1. HYDRALAZINE HYDROCHLORIDE. [Suspect]
     Active Substance: HYDRALAZINE HYDROCHLORIDE
     Indication: GESTATIONAL HYPERTENSION
     Dosage: 5-10MG IN BOLUS AND DOSE WAS REPEATED AFTER EVERY 20 MINUTES UP TO MAXIMUM DOSE OF 30MG
     Route: 042

REACTIONS (2)
  - Exposure during pregnancy [Unknown]
  - Hypotension [Unknown]
